FAERS Safety Report 7730000-5 (Version None)
Quarter: 2011Q3

REPORT INFORMATION
  Report Type: 
  Country: None (occurrence: None)
  Receive Date: 20110906
  Receipt Date: 20110825
  Transmission Date: 20111222
  Serious: Yes (Hospitalization)
  Sender: FDA-Public Use
  Company Number: PHHO2011SE06827

PATIENT
  Sex: Male
  Weight: 70 kg

DRUGS (5)
  1. PREDNISOLONE [Concomitant]
     Indication: RENAL TRANSPLANT
     Dosage: 5 MG, QD
     Dates: start: 20081017
  2. NO TREATMENT RECEIVED [Suspect]
     Indication: RENAL TRANSPLANT
     Dosage: UNK
  3. PREDNISOLONE [Concomitant]
     Dosage: UNK
     Dates: start: 20110127
  4. NEORAL [Suspect]
     Indication: RENAL TRANSPLANT
     Dosage: 75 MG, BID
     Route: 048
     Dates: start: 20081017
  5. MYFORTIC [Suspect]
     Indication: RENAL TRANSPLANT
     Dosage: 720 MG, BID
     Route: 048
     Dates: start: 20081017

REACTIONS (4)
  - METABOLIC ACIDOSIS [None]
  - WEIGHT DECREASED [None]
  - GASTROENTERITIS CALICIVIRAL [None]
  - HYPOKALAEMIA [None]
